FAERS Safety Report 5945372-1 (Version None)
Quarter: 2008Q4

REPORT INFORMATION
  Report Type: 
  Country: None (occurrence: None)
  Receive Date: 20081107
  Receipt Date: 20081027
  Transmission Date: 20090506
  Serious: Yes (Other)
  Sender: FDA-Public Use
  Company Number: US-PFIZER INC-2005067527

PATIENT
  Sex: Female
  Weight: 72.6 kg

DRUGS (2)
  1. LIPITOR [Suspect]
     Indication: BLOOD CHOLESTEROL INCREASED
     Route: 048
     Dates: start: 19930101, end: 20050201
  2. ZESTRIL [Concomitant]
     Route: 048

REACTIONS (5)
  - BLOOD PRESSURE INCREASED [None]
  - CYSTITIS [None]
  - RENAL FAILURE [None]
  - RHEUMATOID ARTHRITIS [None]
  - VERTIGO [None]
